FAERS Safety Report 13878853 (Version 1)
Quarter: 2017Q3

REPORT INFORMATION
  Report Type: Spontaneous
  Country: US (occurrence: US)
  Receive Date: 20170817
  Receipt Date: 20170817
  Transmission Date: 20171127
  Serious: No
  Sender: FDA-Public Use
  Company Number: US-SYNERGY PHARMACEUTICALS INC-US-2017SNG000079

PATIENT

DRUGS (5)
  1. METOPROLOL. [Concomitant]
     Active Substance: METOPROLOL
     Indication: CARDIAC DISORDER
     Dosage: 25 MG, QD
     Route: 048
     Dates: start: 2017
  2. TRULANCE [Suspect]
     Active Substance: PLECANATIDE
     Indication: DIARRHOEA
     Dosage: 3 MG, QD FOR 7 DAYS
     Route: 048
     Dates: start: 20170519, end: 20170523
  3. HYDROCORTISONE. [Concomitant]
     Active Substance: HYDROCORTISONE
     Indication: SKIN DISORDER
     Dosage: UNK INJECTION
     Dates: start: 201705, end: 201705
  4. TRULANCE [Suspect]
     Active Substance: PLECANATIDE
     Indication: COELIAC DISEASE
  5. GUANFACINE. [Concomitant]
     Active Substance: GUANFACINE
     Indication: BLOOD PRESSURE ABNORMAL
     Dosage: 2 MG, QD
     Route: 048

REACTIONS (2)
  - Product use in unapproved indication [Unknown]
  - Pruritus [Recovered/Resolved]

NARRATIVE: CASE EVENT DATE: 20170519
